FAERS Safety Report 22004375 (Version 3)
Quarter: 2023Q2

REPORT INFORMATION
  Report Type: Spontaneous
  Country: US (occurrence: US)
  Receive Date: 20230217
  Receipt Date: 20230417
  Transmission Date: 20230721
  Serious: Yes (Other)
  Sender: FDA-Public Use
  Company Number: US-002147023-NVSC2023US033158

PATIENT
  Sex: Male

DRUGS (5)
  1. MEKINIST [Suspect]
     Active Substance: TRAMETINIB DIMETHYL SULFOXIDE
     Indication: Thyroid cancer
     Dosage: 2 MG, QD
     Route: 048
     Dates: start: 202301
  2. TAFINLAR [Suspect]
     Active Substance: DABRAFENIB MESYLATE
     Indication: Thyroid cancer
     Dosage: 2 DOSAGE FORM, BID
     Route: 048
     Dates: start: 202301
  3. TAFINLAR [Suspect]
     Active Substance: DABRAFENIB MESYLATE
     Dosage: 150 MG, Q12H
     Route: 048
     Dates: start: 202301
  4. TAFINLAR [Suspect]
     Active Substance: DABRAFENIB MESYLATE
     Dosage: 75 MG, BID
     Route: 048
     Dates: start: 202301
  5. REFRESH CLASSIC [Concomitant]
     Active Substance: POLYVINYL ALCOHOL\POVIDONE
     Indication: Product used for unknown indication
     Dosage: UNK
     Route: 065

REACTIONS (10)
  - Metastases to central nervous system [Unknown]
  - Metastases to lung [Unknown]
  - Vision blurred [Unknown]
  - Eye irritation [Unknown]
  - Eating disorder [Unknown]
  - Chills [Unknown]
  - Dizziness [Unknown]
  - Headache [Unknown]
  - Nausea [Unknown]
  - Pyrexia [Unknown]
